FAERS Safety Report 8531515-2 (Version None)
Quarter: 2012Q3

REPORT INFORMATION
  Report Type: 
  Country: None (occurrence: None)
  Receive Date: 20120723
  Receipt Date: 20120717
  Transmission Date: 20120928
  Serious: Yes (Other)
  Sender: FDA-Public Use
  Company Number: US-PFIZER INC-2012172673

PATIENT
  Sex: Male
  Weight: 125.17 kg

DRUGS (4)
  1. GABAPENTIN [Suspect]
     Indication: BACK PAIN
     Dosage: 300 MG, 2X/DAY
     Route: 048
  2. MULTI-VITAMINS [Concomitant]
     Dosage: UNK, DAILY
  3. VITAMIN D [Concomitant]
     Dosage: 1000 IU, DAILY
  4. NEURONTIN [Suspect]
     Indication: BACK PAIN
     Dosage: 300 MG, 2X/DAY
     Route: 048

REACTIONS (2)
  - BLOOD CREATINE PHOSPHOKINASE INCREASED [None]
  - LIVER FUNCTION TEST ABNORMAL [None]
